FAERS Safety Report 8822217 (Version 1)
Quarter: 2012Q4

REPORT INFORMATION
  Report Type: 
  Country: US (occurrence: US)
  Receive Date: 20121003
  Receipt Date: 20121003
  Transmission Date: 20130627
  Serious: No
  Sender: FDA-Public Use
  Company Number: US-PFIZER INC-2012241912

PATIENT
  Age: 52 Year
  Sex: Female
  Weight: 86.17 kg

DRUGS (8)
  1. CHILDRENS ADVIL [Suspect]
     Indication: ARTHRITIS
     Dosage: UNK, as needed (2-3 times a day)
  2. CHILDRENS ADVIL [Suspect]
     Indication: FIBROMYALGIA
  3. CHILDRENS ADVIL [Suspect]
     Indication: SYSTEMIC LUPUS ERYTHEMATOSUS
  4. CHILDRENS ADVIL [Suspect]
     Indication: MIGRAINE
  5. ADVIL [Suspect]
     Indication: ARTHRITIS
     Dosage: UNK
  6. ADVIL [Suspect]
     Indication: FIBROMYALGIA
  7. ADVIL [Suspect]
     Indication: SYSTEMIC LUPUS ERYTHEMATOSUS
  8. ADVIL [Suspect]
     Indication: MIGRAINE

REACTIONS (4)
  - Tooth discolouration [Not Recovered/Not Resolved]
  - Dysphagia [Unknown]
  - Weight decreased [Unknown]
  - Product size issue [Unknown]
